FAERS Safety Report 24886783 (Version 4)
Quarter: 2025Q1

REPORT INFORMATION
  Report Type: Report from Study
  Country: US (occurrence: US)
  Receive Date: 20250126
  Receipt Date: 20250217
  Transmission Date: 20250408
  Serious: Yes (Other)
  Sender: ABBVIE
  Company Number: US-ABBVIE-6099458

PATIENT
  Age: 63 Year
  Sex: Female

DRUGS (1)
  1. RINVOQ [Suspect]
     Active Substance: UPADACITINIB
     Indication: Dermatitis atopic
     Route: 048
     Dates: start: 202410

REACTIONS (5)
  - Femur fracture [Recovering/Resolving]
  - Brain fog [Unknown]
  - Sciatica [Unknown]
  - Pruritus [Unknown]
  - Injury [Unknown]

NARRATIVE: CASE EVENT DATE: 20240101
